FAERS Safety Report 10501829 (Version 4)
Quarter: 2014Q4

REPORT INFORMATION
  Report Type: Spontaneous
  Country: JP (occurrence: JP)
  Receive Date: 20141007
  Receipt Date: 20141229
  Transmission Date: 20150528
  Serious: Yes (Life-Threatening, Hospitalization, Other)
  Sender: FDA-Public Use
  Company Number: JP-PFIZER INC-2014273861

PATIENT
  Age: 86 Year
  Sex: Female
  Weight: 42 kg

DRUGS (15)
  1. YOKUKAN-SAN [Concomitant]
     Active Substance: UNSPECIFIED INGREDIENT
     Indication: IRRITABILITY
     Dosage: 2.5 G, 3X/DAY
     Route: 048
     Dates: start: 20130829
  2. ROZEREM [Concomitant]
     Active Substance: RAMELTEON
     Indication: INSOMNIA
     Dosage: 8 MG, 1X/DAY
     Route: 048
     Dates: start: 20130829
  3. MIYA-BM [Concomitant]
     Active Substance: CLOSTRIDIUM BUTYRICUM SPORES STRAIN M-55
     Dosage: 1 G, 3X/DAY
     Route: 048
  4. MAGMITT [Concomitant]
     Active Substance: MAGNESIUM OXIDE
     Indication: CONSTIPATION
     Dosage: 500 MG, 1X/DAY
     Route: 048
  5. DIOVAN [Concomitant]
     Active Substance: VALSARTAN
     Dosage: 80 MG, 1X/DAY
     Route: 048
  6. THYRADIN S [Concomitant]
     Active Substance: LEVOTHYROXINE SODIUM
     Dosage: 12.5 ?G, 1X/DAY
     Route: 048
  7. MARZULENE S [Concomitant]
     Active Substance: GLUTAMINE\SODIUM GUALENATE
     Dosage: 0.5 G, 3X/DAY
     Route: 048
  8. LAMICTAL [Concomitant]
     Active Substance: LAMOTRIGINE
     Indication: EPILEPSY
     Dosage: 25 MG, 1X/DAY
     Route: 048
     Dates: start: 20140623, end: 20140715
  9. PLAVIX [Concomitant]
     Active Substance: CLOPIDOGREL BISULFATE
     Dosage: 25 MG, 1X/DAY
     Route: 048
  10. CEREKINON [Concomitant]
     Active Substance: TRIMEBUTINE
     Dosage: 100 MG, 3X/DAY
     Route: 048
  11. FLUITRAN [Concomitant]
     Active Substance: TRICHLORMETHIAZIDE
     Dosage: 1 MG, 1X/DAY
     Route: 048
  12. TAKEPRON OD [Concomitant]
     Active Substance: LANSOPRAZOLE
     Dosage: 15 MG, 1X/DAY
     Route: 048
  13. LIVALO OD [Concomitant]
     Dosage: 1 MG, 1X/DAY
     Route: 048
  14. JZOLOFT [Suspect]
     Active Substance: SERTRALINE HYDROCHLORIDE
     Indication: ANXIETY
     Dosage: 50 MG, 1X/DAY
     Route: 048
     Dates: start: 20140619, end: 20140628
  15. MAINTATE [Concomitant]
     Active Substance: BISOPROLOL FUMARATE
     Dosage: 2.5 MG, 1X/DAY
     Route: 048

REACTIONS (2)
  - Bradycardia [Unknown]
  - Inappropriate antidiuretic hormone secretion [Recovered/Resolved]

NARRATIVE: CASE EVENT DATE: 20140628
